FAERS Safety Report 5288400-1 (Version None)
Quarter: 2007Q2

REPORT INFORMATION
  Report Type: 
  Country: None (occurrence: None)
  Receive Date: 20070405
  Receipt Date: 20070327
  Transmission Date: 20071010
  Serious: Yes (Other)
  Sender: FDA-Public Use
  Company Number: 2007GB00662

PATIENT
  Age: 31250 Day
  Sex: Female

DRUGS (2)
  1. SEROQUEL [Suspect]
     Route: 048
  2. AMISULPRIDE [Concomitant]

REACTIONS (2)
  - DEMENTIA [None]
  - LOSS OF CONSCIOUSNESS [None]
